FAERS Safety Report 8861276 (Version 1)
Quarter: 2012Q4

REPORT INFORMATION
  Report Type: Spontaneous
  Country: US (occurrence: None)
  Receive Date: 20121025
  Receipt Date: 20121025
  Transmission Date: 20130627
  Serious: Yes (Other)
  Sender: FDA-Public Use
  Company Number: None

PATIENT
  Age: 25 Year
  Sex: Female

DRUGS (2)
  1. ESCITALOPRAM [Suspect]
     Route: 048
     Dates: start: 201206
  2. ESCITALOPRAM [Suspect]
     Route: 048
     Dates: start: 201206

REACTIONS (2)
  - Depressive symptom [None]
  - Product substitution issue [None]
